FAERS Safety Report 18222322 (Version 1)
Quarter: 2020Q3

REPORT INFORMATION
  Report Type: Spontaneous
  Country: CA (occurrence: CA)
  Receive Date: 20200902
  Receipt Date: 20200902
  Transmission Date: 20201103
  Serious: Yes (Disabling)
  Sender: FDA-Public Use
  Company Number: CA-ACCORD-198291

PATIENT
  Age: 13 Year
  Sex: Male
  Weight: 43 kg

DRUGS (27)
  1. MACROGOL [Concomitant]
     Active Substance: POLYETHYLENE GLYCOLS
  2. HYDROXYZINE [Concomitant]
     Active Substance: HYDROXYZINE HYDROCHLORIDE
  3. FUROSEMIDE. [Concomitant]
     Active Substance: FUROSEMIDE
  4. CISPLATIN. [Suspect]
     Active Substance: CISPLATIN
     Indication: OSTEOSARCOMA
     Dosage: 1 EVERY 1 DAYS
     Route: 042
  5. TOBRAMYCIN. [Concomitant]
     Active Substance: TOBRAMYCIN
  6. HEPARIN [Concomitant]
     Active Substance: HEPARIN SODIUM
  7. LANSOPRAZOLE. [Concomitant]
     Active Substance: LANSOPRAZOLE
  8. EMEND [Concomitant]
     Active Substance: APREPITANT
  9. DOXORUBICIN [Concomitant]
     Active Substance: DOXORUBICIN
  10. DEXAMETHASONE. [Concomitant]
     Active Substance: DEXAMETHASONE
     Route: 014
  11. PIPERACILLIN/TAZOBACTAM [Concomitant]
     Active Substance: PIPERACILLIN SODIUM\TAZOBACTAM SODIUM
  12. ONDANSETRON [Concomitant]
     Active Substance: ONDANSETRON
  13. OLANZAPINE. [Concomitant]
     Active Substance: OLANZAPINE
  14. MORPHINE [Concomitant]
     Active Substance: MORPHINE
  15. METOCLOPRAMIDE. [Concomitant]
     Active Substance: METOCLOPRAMIDE
  16. LORAZEPAM. [Concomitant]
     Active Substance: LORAZEPAM
  17. SULFAMETHOXAZOLE/TRIMETHOPRIM [Concomitant]
     Active Substance: SULFAMETHOXAZOLE\TRIMETHOPRIM
  18. HYDROMORPHONE/HYDROMORPHONE HYDROCHLORIDE [Concomitant]
     Active Substance: HYDROMORPHONE
  19. FILGRASTIM [Concomitant]
     Active Substance: FILGRASTIM
  20. DIMENHYDRINATE. [Concomitant]
     Active Substance: DIMENHYDRINATE
  21. PARACETAMOL [Concomitant]
     Active Substance: ACETAMINOPHEN
  22. RANITIDINE. [Concomitant]
     Active Substance: RANITIDINE
  23. METHOTREXATE. [Concomitant]
     Active Substance: METHOTREXATE
  24. DOCUSATE [Concomitant]
     Active Substance: DOCUSATE
  25. VANCOMYCIN [Concomitant]
     Active Substance: VANCOMYCIN
  26. MAGNESIUM SULFATE. [Concomitant]
     Active Substance: MAGNESIUM SULFATE
     Route: 030
  27. DIPHENHYDRAMINE. [Concomitant]
     Active Substance: DIPHENHYDRAMINE

REACTIONS (2)
  - Condition aggravated [Unknown]
  - Ototoxicity [Unknown]
